FAERS Safety Report 16300443 (Version 2)
Quarter: 2019Q3

REPORT INFORMATION
  Report Type: Spontaneous
  Country: US (occurrence: US)
  Receive Date: 20190510
  Receipt Date: 20190711
  Transmission Date: 20191004
  Serious: Yes (Death, Hospitalization, Other)
  Sender: FDA-Public Use
  Company Number: US-JNJFOC-20190512095

PATIENT
  Age: 81 Year
  Sex: Male

DRUGS (1)
  1. ZYTIGA [Suspect]
     Active Substance: ABIRATERONE ACETATE
     Indication: PRODUCT USED FOR UNKNOWN INDICATION
     Route: 048
     Dates: end: 20181030

REACTIONS (5)
  - Swelling [Unknown]
  - Cerebral haemorrhage [Unknown]
  - Fall [Unknown]
  - Death [Fatal]
  - Pelvic fracture [Unknown]

NARRATIVE: CASE EVENT DATE: 20181030
